FAERS Safety Report 16796914 (Version 9)
Quarter: 2020Q1

REPORT INFORMATION
  Report Type: Report from Study
  Country: SA (occurrence: SA)
  Receive Date: 20190911
  Receipt Date: 20200106
  Transmission Date: 20200409
  Serious: Yes (Hospitalization, Other)
  Sender: FDA-Public Use
  Company Number: SA-CELLTRION INC.-2019SA024765

PATIENT

DRUGS (5)
  1. ENOXAPARINE [Concomitant]
     Active Substance: ENOXAPARIN
     Indication: PROPHYLAXIS
     Dosage: 40 MG (40 MG, 1 IN 24 HR)
     Route: 058
     Dates: start: 20190729, end: 20190816
  2. REMSIMA [Suspect]
     Active Substance: INFLIXIMAB
     Indication: COLITIS ULCERATIVE
     Dosage: UNK
     Dates: start: 201901
  3. MESALAZINE [Concomitant]
     Active Substance: MESALAMINE
     Dosage: UNK
  4. IMURAN [Concomitant]
     Active Substance: AZATHIOPRINE
     Dosage: 100 MG
  5. REMSIMA [Suspect]
     Active Substance: INFLIXIMAB
     Dosage: 1030 MG AT WEEKS 0, 2, 6, AND EVERY 8 WEEKS
     Route: 041
     Dates: start: 20190624, end: 20190624

REACTIONS (8)
  - Psoas abscess [Recovered/Resolved]
  - Back pain [Recovered/Resolved]
  - Loss of personal independence in daily activities [Recovered/Resolved]
  - Brucellosis [Recovered/Resolved]
  - Disease recurrence [Recovered/Resolved]
  - Overdose [Unknown]
  - Intervertebral discitis [Recovered/Resolved]
  - Product dose omission [Unknown]

NARRATIVE: CASE EVENT DATE: 20190727
